FAERS Safety Report 10583637 (Version 5)
Quarter: 2015Q2

REPORT INFORMATION
  Report Type: Spontaneous
  Country: US (occurrence: None)
  Receive Date: 20141112
  Receipt Date: 20150520
  Transmission Date: 20150821
  Serious: Yes (Death, Other)
  Sender: FDA-Public Use
  Company Number: US-H14001-14-01438

PATIENT
  Age: 67 Year
  Sex: Male
  Weight: 98.88 kg

DRUGS (19)
  1. ADVIL (MEFENAMIC ACID) TABLETS [Concomitant]
  2. D 1000 (COLECALCIFEROL) TABLETS [Concomitant]
  3. VALACYCLOVIR HCL (VALACICLOVIR HYDROCHLORIDE) TABLETS [Concomitant]
  4. CEFPODOXIME (CEFPODOXIME) TABLETS [Concomitant]
  5. CIPROFLOXACIN (CIPROFLOXACIN) TABLETS [Concomitant]
  6. SULFAMETHOXAZOLE-TMP DS (BACTRIM) TABLETS (SULFAMETHOXAZOLE, TRIMETHOPRIM) [Concomitant]
  7. ACETAMINOPHEN (PARACETAMOL) TABLETS [Concomitant]
  8. RANITIDINE (RANITIDINE) CAPSULES [Concomitant]
  9. PREDNISONE (PREDNISONE) TABLETS [Concomitant]
  10. EXJADE (DEFERASIROX) TABLETS [Concomitant]
  11. FAMOTIDINE (FAMOTIDINE) TABLETS [Concomitant]
  12. SMZ-TMP DS (BACTRIM TABLETS (SULFAMETHOXAZOLE, TRIMETHOPRIM) [Concomitant]
  13. DEXAMETHASONE (DEXAMETHASONE SODIUM PHOSPHATE) (UNKNOWN) (DEXAMETHASONE SODIUM PHOSPHATE) [Suspect]
     Active Substance: DEXAMETHASONE SODIUM PHOSPHATE
     Indication: PLASMA CELL MYELOMA
     Dosage: 10 MG (10M, DAY 1,4,8, 11 EACH CYCLE)
     Route: 042
     Dates: start: 20100710, end: 20100920
  14. TYLENOL (PARACETAMOL) (TABLETS) [Concomitant]
  15. METHOTREXATE (METHOTREXATE) TABLETS [Concomitant]
  16. MELPHALAN (MELPHALAN) [Suspect]
     Active Substance: MELPHALAN
     Indication: STEM CELL TRANSPLANT
     Dosage: 24 HOURS
     Route: 042
     Dates: start: 20110305, end: 20110307
  17. VELCADE [Suspect]
     Active Substance: BORTEZOMIB
     Indication: PLASMA CELL MYELOMA
     Dosage: 3 MG (3 MG, DAY 1,4, 8,11 EACH CYCLE)
     Route: 042
     Dates: start: 20100712, end: 20100920
  18. CYCLOPHOSPHAMIDE (CYCLOPHOSPHAMIDE) TABLETS [Concomitant]
  19. CYCLOSPORINE (CICLOSPRORIN) CAPSULES [Concomitant]

REACTIONS (4)
  - Myelodysplastic syndrome [None]
  - Autoimmune haemolytic anaemia [None]
  - Thrombocytopenia [None]
  - Renal failure [None]

NARRATIVE: CASE EVENT DATE: 20120705
